FAERS Safety Report 9571255 (Version 3)
Quarter: 2013Q4

REPORT INFORMATION
  Report Type: Report from Study
  Country: FR (occurrence: FR)
  Receive Date: 20131001
  Receipt Date: 20131202
  Transmission Date: 20140711
  Serious: Yes (Death, Hospitalization, Disabling)
  Sender: FDA-Public Use
  Company Number: FR-CELGENEUS-056-C4047-13072263

PATIENT
  Age: 72 Year
  Sex: Male
  Weight: 55 kg

DRUGS (2)
  1. CC-4047 [Suspect]
     Indication: PLASMA CELL MYELOMA
     Dosage: 3 MILLIGRAM
     Route: 048
     Dates: start: 20120912, end: 20130529
  2. CC-4047 [Suspect]
     Dosage: 3 MILLIGRAM
     Route: 048

REACTIONS (2)
  - Corneal abscess [Recovered/Resolved with Sequelae]
  - Plasma cell myeloma [Fatal]
